FAERS Safety Report 19793757 (Version 1)
Quarter: 2021Q3

REPORT INFORMATION
  Report Type: Spontaneous
  Country: US (occurrence: US)
  Receive Date: 20210907
  Receipt Date: 20210907
  Transmission Date: 20211014
  Serious: Yes (Hospitalization)
  Sender: FDA-Public Use
  Company Number: US-JNJFOC-20210849547

PATIENT
  Age: 42 Year
  Sex: Female
  Weight: 57 kg

DRUGS (1)
  1. PARACETAMOL [Suspect]
     Active Substance: ACETAMINOPHEN
     Indication: SUICIDE ATTEMPT
     Dosage: 28000 MG ONCE AT 18:00
     Route: 048
     Dates: start: 20000325, end: 20000325

REACTIONS (6)
  - Acute hepatic failure [Recovered/Resolved]
  - Sepsis [Recovered/Resolved]
  - Overdose [Recovered/Resolved]
  - Tracheitis [Recovered/Resolved]
  - Suicide attempt [Recovered/Resolved]
  - Urinary tract infection [Recovered/Resolved]

NARRATIVE: CASE EVENT DATE: 20000325
